FAERS Safety Report 7789674-5 (Version None)
Quarter: 2011Q3

REPORT INFORMATION
  Report Type: 
  Country: None (occurrence: None)
  Receive Date: 20110930
  Receipt Date: 20110726
  Transmission Date: 20111222
  Serious: No
  Sender: FDA-Public Use
  Company Number: US-ASTRAZENECA-2011SE44820

PATIENT
  Age: 80 Year
  Sex: Female

DRUGS (2)
  1. ARIMIDEX [Suspect]
     Route: 048
  2. ZOCOR [Suspect]
     Route: 065

REACTIONS (3)
  - THYROID DISORDER [None]
  - ADVERSE DRUG REACTION [None]
  - MUSCLE DISORDER [None]
